FAERS Safety Report 11968252 (Version 1)
Quarter: 2016Q1

REPORT INFORMATION
  Report Type: Spontaneous
  Country: MX (occurrence: MX)
  Receive Date: 20160127
  Receipt Date: 20160127
  Transmission Date: 20160526
  Serious: Yes (Other)
  Sender: FDA-Public Use
  Company Number: MX-CORDEN PHARMA LATINA S.P.A.-MX-2016COR000013

PATIENT
  Age: 4 Year
  Sex: Male

DRUGS (3)
  1. ARA-C [Suspect]
     Active Substance: CYTARABINE
     Indication: ACUTE MYELOID LEUKAEMIA
     Dosage: UNK
  2. DAUNORUBICIN [Suspect]
     Active Substance: DAUNORUBICIN
     Indication: ACUTE MYELOID LEUKAEMIA
     Dosage: UNK
  3. ETOPOSIDE. [Suspect]
     Active Substance: ETOPOSIDE
     Indication: ACUTE MYELOID LEUKAEMIA
     Dosage: UNK

REACTIONS (9)
  - Perineal erythema [Unknown]
  - Rash [Unknown]
  - Oedema peripheral [Unknown]
  - Pyrexia [Unknown]
  - Erythema [Unknown]
  - Neutropenic colitis [Unknown]
  - Abdominal pain [Unknown]
  - Kawasaki^s disease [Unknown]
  - Diarrhoea [Unknown]
